FAERS Safety Report 5133518-7 (Version None)
Quarter: 2006Q4

REPORT INFORMATION
  Report Type: 
  Country: None (occurrence: None)
  Receive Date: 20061024
  Receipt Date: 20060920
  Transmission Date: 20070319
  Serious: Yes (Hospitalization)
  Sender: FDA-Public Use
  Company Number: US-AMGEN-US194144

PATIENT
  Sex: Female
  Weight: 59.8 kg

DRUGS (18)
  1. EPOGEN [Suspect]
     Indication: ANAEMIA
     Route: 058
     Dates: start: 20060401, end: 20061008
  2. ALDACTONE [Concomitant]
  3. DIGOXIN [Concomitant]
  4. BOSENTAN [Concomitant]
  5. SILDENAFIL [Concomitant]
  6. CELL CEPT [Concomitant]
     Route: 048
     Dates: start: 20060913, end: 20061005
  7. METOLAZONE [Concomitant]
  8. IRON SULFATETHIAMIN COMPOUND TAB [Concomitant]
  9. VICODIN [Concomitant]
  10. LASIX [Concomitant]
     Route: 042
  11. COUMADIN [Concomitant]
     Route: 048
  12. AMIODARONE HCL [Concomitant]
  13. FLOLAN [Concomitant]
  14. BACLOFEN [Concomitant]
  15. POTASSIUM CHLORIDE [Concomitant]
     Route: 048
  16. TRIMETHOPRIM [Concomitant]
     Route: 048
     Dates: start: 20060914, end: 20061005
  17. IMMUNE GLOBULIN INTRAVENOUS (HUMAN) [Concomitant]
     Route: 042
  18. BUMEX [Concomitant]
     Dates: start: 20061004

REACTIONS (3)
  - COR PULMONALE [None]
  - NORMOCHROMIC NORMOCYTIC ANAEMIA [None]
  - PLASMAPHERESIS [None]
